FAERS Safety Report 6698005-3 (Version None)
Quarter: 2010Q2

REPORT INFORMATION
  Report Type: 
  Country: None (occurrence: None)
  Receive Date: 20100427
  Receipt Date: 20100416
  Transmission Date: 20101027
  Serious: Yes (Other)
  Sender: FDA-Public Use
  Company Number: US-JNJFOC-20100306714

PATIENT
  Sex: Female
  Weight: 55.79 kg

DRUGS (12)
  1. REMICADE [Suspect]
     Indication: RHEUMATOID ARTHRITIS
     Route: 042
  2. FOLIC ACID [Concomitant]
  3. LISINOPRIL [Concomitant]
  4. COREG [Concomitant]
  5. LASIX [Concomitant]
  6. CELEBREX [Concomitant]
  7. PREDNISONE [Concomitant]
  8. LEXAPRO [Concomitant]
  9. ACTONEL [Concomitant]
  10. PLAQUENIL [Concomitant]
  11. ASPIRIN [Concomitant]
  12. KARIVA [Concomitant]

REACTIONS (3)
  - CHOLECYSTECTOMY [None]
  - ORAL FUNGAL INFECTION [None]
  - RESPIRATORY TRACT INFECTION FUNGAL [None]
